FAERS Safety Report 6597171 (Version 1)
Quarter: 2020Q3

REPORT INFORMATION
  Report Type: Report from Study
  Country: US (occurrence: US)
  Receive Date: 20080328
  Receipt Date: 20080328
  Transmission Date: 20201104
  Serious: Yes (Hospitalization)
  Sender: FDA-Public Use
  Company Number: US-ROCHE-554000

PATIENT
  Age: 70 Year
  Sex: Female

DRUGS (4)
  1. IBANDRONIC ACID. [Suspect]
     Active Substance: IBANDRONIC ACID
     Indication: OSTEOPOROSIS
     Route: 048
     Dates: start: 200705
  2. MICARDIS [Concomitant]
     Active Substance: TELMISARTAN
  3. ZOCOR [Concomitant]
     Active Substance: SIMVASTATIN
  4. PREVACID [Concomitant]
     Active Substance: LANSOPRAZOLE

REACTIONS (4)
  - Intestinal obstruction [Unknown]
  - Oesophagitis haemorrhagic [Unknown]
  - Inflammation [None]
  - Abdominal pain [Unknown]

NARRATIVE: CASE EVENT DATE: 20071212
